FAERS Safety Report 17577999 (Version 2)
Quarter: 2020Q3

REPORT INFORMATION
  Report Type: Spontaneous
  Country: US (occurrence: US)
  Receive Date: 20200324
  Receipt Date: 20200903
  Transmission Date: 20201102
  Serious: Yes (Other)
  Sender: FDA-Public Use
  Company Number: US-GILEAD-2020-0455850

PATIENT
  Sex: Male
  Weight: 81.6 kg

DRUGS (41)
  1. ISENTRESS [Concomitant]
     Active Substance: RALTEGRAVIR POTASSIUM
  2. CRESTOR [Concomitant]
     Active Substance: ROSUVASTATIN CALCIUM
  3. DELESTROGEN [Concomitant]
     Active Substance: ESTRADIOL VALERATE
  4. LISINOPRIL. [Concomitant]
     Active Substance: LISINOPRIL
  5. BIKTARVY [Concomitant]
     Active Substance: BICTEGRAVIR SODIUM\EMTRICITABINE\TENOFOVIR ALAFENAMIDE FUMARATE
  6. ZIAGEN [Concomitant]
     Active Substance: ABACAVIR SULFATE
  7. ATORVASTATIN [Concomitant]
     Active Substance: ATORVASTATIN
  8. TYLENOL [Concomitant]
     Active Substance: ACETAMINOPHEN
  9. EPZICOM [Concomitant]
     Active Substance: ABACAVIR SULFATE\LAMIVUDINE
  10. KALETRA [Concomitant]
     Active Substance: LOPINAVIR\RITONAVIR
  11. AZITHROMYCIN ANHYDROUS. [Concomitant]
     Active Substance: AZITHROMYCIN ANHYDROUS
  12. COREG [Concomitant]
     Active Substance: CARVEDILOL
  13. EPOGEN [Concomitant]
     Active Substance: ERYTHROPOIETIN
  14. ALBUTEROL SULFATE. [Concomitant]
     Active Substance: ALBUTEROL SULFATE
  15. EMTRIVA [Concomitant]
     Active Substance: EMTRICITABINE
  16. ASPIRIN 81 [Concomitant]
     Active Substance: ASPIRIN
  17. BACTRIM [Concomitant]
     Active Substance: SULFAMETHOXAZOLE\TRIMETHOPRIM
  18. HUMULIN C [Concomitant]
  19. TRAMADOL. [Concomitant]
     Active Substance: TRAMADOL
  20. XANAX [Concomitant]
     Active Substance: ALPRAZOLAM
  21. TRUVADA [Suspect]
     Active Substance: EMTRICITABINE\TENOFOVIR DISOPROXIL FUMARATE
     Indication: HIV INFECTION
     Dosage: UNK
     Route: 048
     Dates: start: 2004, end: 20130707
  22. CHOLECALCIFEROL [Concomitant]
     Active Substance: CHOLECALCIFEROL
  23. FLOMAX [Concomitant]
     Active Substance: TAMSULOSIN HYDROCHLORIDE
  24. FLUARIX NOS [Concomitant]
     Active Substance: INFLUENZA VIRUS VACCINE
  25. LOPERAMIDE [Concomitant]
     Active Substance: LOPERAMIDE
  26. OXAYDO [Concomitant]
     Active Substance: OXYCODONE HYDROCHLORIDE
  27. TIVICAY [Concomitant]
     Active Substance: DOLUTEGRAVIR SODIUM
  28. FENTANYL. [Concomitant]
     Active Substance: FENTANYL
  29. PREDNISONE. [Concomitant]
     Active Substance: PREDNISONE
  30. SINGULAIR [Concomitant]
     Active Substance: MONTELUKAST SODIUM
  31. LISINOPRIL ALPHARMA [Concomitant]
  32. NORVIR [Concomitant]
     Active Substance: RITONAVIR
  33. PREZISTA [Concomitant]
     Active Substance: DARUNAVIR ETHANOLATE
  34. ACETAMINOPHEN. [Concomitant]
     Active Substance: ACETAMINOPHEN
  35. CIALIS [Concomitant]
     Active Substance: TADALAFIL
  36. LYRICA [Concomitant]
     Active Substance: PREGABALIN
  37. TESSALON [Concomitant]
     Active Substance: BENZONATATE
  38. TIZANIDINE. [Concomitant]
     Active Substance: TIZANIDINE
  39. VITAMIN D3 [Concomitant]
     Active Substance: CHOLECALCIFEROL
  40. SPIRONOLACTONE. [Concomitant]
     Active Substance: SPIRONOLACTONE
  41. VIRAMUNE [Concomitant]
     Active Substance: NEVIRAPINE

REACTIONS (8)
  - Chronic kidney disease [Not Recovered/Not Resolved]
  - Emotional distress [Not Recovered/Not Resolved]
  - Economic problem [Not Recovered/Not Resolved]
  - Renal impairment [Unknown]
  - Pain [Not Recovered/Not Resolved]
  - Anxiety [Not Recovered/Not Resolved]
  - Renal injury [Unknown]
  - Anhedonia [Not Recovered/Not Resolved]

NARRATIVE: CASE EVENT DATE: 2013
